FAERS Safety Report 9332421 (Version 1)
Quarter: 2013Q2

REPORT INFORMATION
  Report Type: Report from Study
  Country: FR (occurrence: FR)
  Receive Date: 20130606
  Receipt Date: 20130606
  Transmission Date: 20140414
  Serious: Yes (Hospitalization)
  Sender: FDA-Public Use
  Company Number: FR-ROCHE-1229338

PATIENT
  Age: 63 Year
  Sex: Male
  Weight: 60.5 kg

DRUGS (14)
  1. RITUXIMAB [Suspect]
     Indication: MANTLE CELL LYMPHOMA
     Route: 041
     Dates: start: 20120418
  2. RITUXIMAB [Suspect]
     Route: 041
     Dates: start: 20120509
  3. CISPLATIN [Suspect]
     Indication: MANTLE CELL LYMPHOMA
     Route: 065
     Dates: start: 20120418
  4. CISPLATIN [Suspect]
     Route: 065
     Dates: start: 20120509
  5. CYTARABINE [Suspect]
     Indication: MANTLE CELL LYMPHOMA
     Route: 065
     Dates: start: 20120418
  6. CYTARABINE [Suspect]
     Route: 065
     Dates: start: 20120510
  7. DEXAMETHASONE SODIUM PHOSPHATE [Suspect]
     Indication: MANTLE CELL LYMPHOMA
     Dosage: 40 MG/D
     Route: 065
     Dates: start: 20120418
  8. DEXAMETHASONE SODIUM PHOSPHATE [Suspect]
     Route: 065
     Dates: start: 20120512
  9. SULFAMETHOXAZOLE/TRIMETHOPRIM [Concomitant]
     Route: 048
     Dates: start: 20120502
  10. ZELITREX [Concomitant]
     Route: 048
     Dates: start: 20120502
  11. ZYLORIC [Concomitant]
     Route: 048
     Dates: start: 20120504
  12. ATARAX (FRANCE) [Concomitant]
     Route: 048
     Dates: start: 20120529
  13. INEXIUM [Concomitant]
     Route: 048
     Dates: start: 20120529
  14. TANGANIL [Concomitant]
     Route: 048
     Dates: start: 20120502

REACTIONS (3)
  - Febrile neutropenia [Recovered/Resolved]
  - Clostridium difficile infection [Recovered/Resolved]
  - Malnutrition [Recovered/Resolved]
